FAERS Safety Report 5898772-2 (Version None)
Quarter: 2008Q3

REPORT INFORMATION
  Report Type: 
  Country: None (occurrence: None)
  Receive Date: 20080925
  Receipt Date: 20080606
  Transmission Date: 20090109
  Serious: No
  Sender: FDA-Public Use
  Company Number: A0731748A

PATIENT
  Age: 54 Year
  Sex: Female

DRUGS (3)
  1. WELLBUTRIN XL [Suspect]
     Indication: DEPRESSION
     Dosage: 300MG PER DAY
     Route: 048
  2. KLONOPIN [Concomitant]
  3. LEXAPRO [Concomitant]

REACTIONS (4)
  - FAECES DISCOLOURED [None]
  - FAECES HARD [None]
  - FLATULENCE [None]
  - PAIN [None]
